FAERS Safety Report 12014713 (Version 4)
Quarter: 2017Q1

REPORT INFORMATION
  Report Type: Spontaneous
  Country: US (occurrence: US)
  Receive Date: 20160205
  Receipt Date: 20170208
  Transmission Date: 20170428
  Serious: No
  Sender: FDA-Public Use
  Company Number: US-BAUSCH-BL-2015-026093

PATIENT
  Age: 26 Year
  Sex: Female
  Weight: 50 kg

DRUGS (2)
  1. RUCONEST [Suspect]
     Active Substance: HUMAN C1-ESTERASE INHIBITOR
     Indication: HEREDITARY ANGIOEDEMA
     Route: 065
     Dates: start: 201509
  2. RUCONEST [Suspect]
     Active Substance: HUMAN C1-ESTERASE INHIBITOR
     Indication: HEREDITARY ANGIOEDEMA

REACTIONS (2)
  - Exposure during pregnancy [Unknown]
  - Drug effect delayed [Recovered/Resolved]

NARRATIVE: CASE EVENT DATE: 201701
